FAERS Safety Report 5285952-2 (Version None)
Quarter: 2007Q2

REPORT INFORMATION
  Report Type: 
  Country: None (occurrence: None)
  Receive Date: 20070404
  Receipt Date: 20070323
  Transmission Date: 20071010
  Serious: Yes (Hospitalization)
  Sender: FDA-Public Use
  Company Number: CH-BAYER-200711757GDS

PATIENT
  Age: 70 Year
  Sex: Male

DRUGS (3)
  1. ASPIRIN [Suspect]
     Indication: DRUG USE FOR UNKNOWN INDICATION
     Route: 048
     Dates: start: 20070211, end: 20070215
  2. CLEXANE [Suspect]
     Indication: ATRIAL FIBRILLATION
     Route: 058
     Dates: start: 20070211, end: 20070215
  3. SINTROM [Suspect]
     Indication: ATRIAL FIBRILLATION
     Route: 065
     Dates: start: 20070211, end: 20070215

REACTIONS (2)
  - MUSCLE HAEMORRHAGE [None]
  - SHOCK HAEMORRHAGIC [None]
